FAERS Safety Report 19008179 (Version 1)
Quarter: 2021Q1

REPORT INFORMATION
  Report Type: Other
  Country: GB (occurrence: GB)
  Receive Date: 20210315
  Receipt Date: 20210315
  Transmission Date: 20210420
  Serious: Yes (Other)
  Sender: FDA-Public Use
  Company Number: GB-MACLEODS PHARMA UK LTD-MAC2021030435

PATIENT

DRUGS (3)
  1. RITONAVIR. [Concomitant]
     Active Substance: RITONAVIR
     Indication: ILL-DEFINED DISORDER
     Dosage: UNK
     Route: 065
  2. DARUNAVIR [Concomitant]
     Active Substance: DARUNAVIR
     Indication: ILL-DEFINED DISORDER
     Dosage: UNK
     Route: 065
  3. EMTRICITABINE/TENOFOVIR DISOPROXIL [Suspect]
     Active Substance: EMTRICITABINE\TENOFOVIR DISOPROXIL
     Indication: ILL-DEFINED DISORDER
     Dosage: UNK UNK, QD, 200MG/245MG
     Route: 048
     Dates: start: 202005

REACTIONS (4)
  - Dizziness [Unknown]
  - Kidney infection [Unknown]
  - Nightmare [Unknown]
  - Renal pain [Unknown]
